FAERS Safety Report 8233928-5 (Version None)
Quarter: 2012Q1

REPORT INFORMATION
  Report Type: 
  Country: None (occurrence: None)
  Receive Date: 20120326
  Receipt Date: 20120319
  Transmission Date: 20120608
  Serious: Yes (Hospitalization)
  Sender: FDA-Public Use
  Company Number: PHHY2012BR002985

PATIENT
  Sex: Male

DRUGS (2)
  1. FORMOTEROL FUMARATE [Suspect]
     Indication: EMPHYSEMA
     Dates: start: 20110901
  2. WARFARIN SODIUM [Concomitant]
     Indication: THROMBOSIS
     Dosage: 5 MG, UNK

REACTIONS (2)
  - BACK PAIN [None]
  - FATIGUE [None]
